FAERS Safety Report 15252393 (Version 1)
Quarter: 2018Q3

REPORT INFORMATION
  Report Type: Spontaneous
  Country: US (occurrence: US)
  Receive Date: 20180717
  Receipt Date: 20180717
  Transmission Date: 20181010
  Serious: No
  Sender: FDA-Public Use
  Company Number: None

PATIENT
  Sex: Female

DRUGS (1)
  1. QUALITY CHOICE EARWAX REMOVAL KIT [Suspect]
     Active Substance: CARBAMIDE PEROXIDE
     Indication: CERUMEN REMOVAL
     Dates: start: 20171201

REACTIONS (2)
  - Hypertension [None]
  - Tinnitus [None]

NARRATIVE: CASE EVENT DATE: 20180501
